FAERS Safety Report 16770168 (Version 1)
Quarter: 2019Q3

REPORT INFORMATION
  Report Type: Spontaneous
  Country: US (occurrence: US)
  Receive Date: 20190904
  Receipt Date: 20190904
  Transmission Date: 20191005
  Serious: Yes (Other)
  Sender: FDA-Public Use
  Company Number: US-LUPIN PHARMACEUTICALS INC.-2019-05665

PATIENT
  Age: 61 Year
  Sex: Male

DRUGS (3)
  1. FLUOCINOLONE [Suspect]
     Active Substance: FLUOCINOLONE
     Dosage: UNK
     Dates: start: 201802
  2. FLUOCINOLONE [Suspect]
     Active Substance: FLUOCINOLONE
     Indication: DIABETIC RETINAL OEDEMA
     Dosage: UNK
     Dates: start: 201509
  3. AFLIBERCEPT [Concomitant]
     Active Substance: AFLIBERCEPT
     Indication: DIABETIC RETINAL OEDEMA
     Dosage: UNK
     Dates: start: 201611

REACTIONS (2)
  - Corneal oedema [Recovering/Resolving]
  - Device dislocation [Unknown]

NARRATIVE: CASE EVENT DATE: 2018
